FAERS Safety Report 5441523-6 (Version None)
Quarter: 2007Q3

REPORT INFORMATION
  Report Type: 
  Country: None (occurrence: None)
  Receive Date: 20070829
  Receipt Date: 20070815
  Transmission Date: 20080115
  Serious: Yes (Hospitalization)
  Sender: FDA-Public Use
  Company Number: 2007BI013548

PATIENT
  Age: 59 Year
  Sex: Female

DRUGS (1)
  1. NATALIZUMAB [Suspect]
     Indication: MULTIPLE SCLEROSIS
     Dosage: IV, 300 MG; QM; IV
     Route: 042
     Dates: start: 20070420, end: 20070618

REACTIONS (13)
  - ANAPHYLACTIC REACTION [None]
  - BLOOD PRESSURE IMMEASURABLE [None]
  - BRONCHOSPASM [None]
  - CHEST PAIN [None]
  - CYANOSIS [None]
  - DRUG SPECIFIC ANTIBODY PRESENT [None]
  - GASTROOESOPHAGEAL REFLUX DISEASE [None]
  - HYPERGLYCAEMIA [None]
  - HYPOTHYROIDISM [None]
  - INFUSION RELATED REACTION [None]
  - LARYNGOSPASM [None]
  - TACHYCARDIA [None]
  - URINARY TRACT INFECTION [None]
